FAERS Safety Report 7202414-3 (Version None)
Quarter: 2010Q4

REPORT INFORMATION
  Report Type: 
  Country: None (occurrence: None)
  Receive Date: 20101229
  Receipt Date: 20101215
  Transmission Date: 20110411
  Serious: Yes (Hospitalization)
  Sender: FDA-Public Use
  Company Number: A0876386A

PATIENT
  Sex: Male

DRUGS (4)
  1. AVANDIA [Suspect]
     Dosage: 4MG UNKNOWN
     Route: 048
     Dates: start: 20020101, end: 20070101
  2. ATENOLOL [Concomitant]
  3. ASPIRIN [Concomitant]
  4. TRENTAL [Concomitant]

REACTIONS (6)
  - CORONARY ARTERY BYPASS [None]
  - IMPLANTABLE DEFIBRILLATOR INSERTION [None]
  - MYOCARDIAL INFARCTION [None]
  - MYOCARDIAL ISCHAEMIA [None]
  - SINUS ARRHYTHMIA [None]
  - VENTRICULAR TACHYCARDIA [None]
